FAERS Safety Report 4570710-4 (Version None)
Quarter: 2005Q1

REPORT INFORMATION
  Report Type: 
  Country: None (occurrence: None)
  Receive Date: 20050202
  Receipt Date: 20050112
  Transmission Date: 20050727
  Serious: Yes (Disabling)
  Sender: FDA-Public Use
  Company Number: EWC050142236

PATIENT
  Age: 56 Year
  Sex: Male

DRUGS (2)
  1. ZYPREXA [Suspect]
     Indication: DELUSION
     Dates: start: 20001007
  2. NALTREXONE [Concomitant]

REACTIONS (2)
  - DYSTONIA [None]
  - TORTICOLLIS [None]
